FAERS Safety Report 7068545-6 (Version None)
Quarter: 2010Q4

REPORT INFORMATION
  Report Type: 
  Country: None (occurrence: None)
  Receive Date: 20101028
  Receipt Date: 20101025
  Transmission Date: 20110411
  Serious: Yes (Hospitalization)
  Sender: FDA-Public Use
  Company Number: US-GILEAD-2010-0032896

PATIENT
  Age: 75 Year
  Sex: Female
  Weight: 103.06 kg

DRUGS (20)
  1. LETAIRIS [Suspect]
     Indication: PULMONARY ARTERIAL HYPERTENSION
     Route: 048
     Dates: start: 20090305
  2. COUMADIN [Concomitant]
  3. ENALAPRIL MALEATE [Concomitant]
  4. FUROSEMIDE [Concomitant]
  5. IMDUR [Concomitant]
  6. PRINIVIL [Concomitant]
  7. PRAVACHOL [Concomitant]
  8. PREDNISONE [Concomitant]
  9. HUMALOG [Concomitant]
  10. LANTUS [Concomitant]
  11. JANUVIA [Concomitant]
  12. BYETTA [Concomitant]
  13. EFFEXOR [Concomitant]
  14. VENLAFAXINE [Concomitant]
  15. DETROL LA [Concomitant]
  16. BENZONATATE [Concomitant]
  17. ERY-TAB [Concomitant]
  18. BACTRIM [Concomitant]
  19. VITAMIN D [Concomitant]
  20. POTASSIUM CHLORIDE [Concomitant]

REACTIONS (1)
  - DIVERTICULITIS [None]
